FAERS Safety Report 20780862 (Version 1)
Quarter: 2022Q2

REPORT INFORMATION
  Report Type: Report from Study
  Country: CR (occurrence: CR)
  Receive Date: 20220504
  Receipt Date: 20220504
  Transmission Date: 20220721
  Serious: Yes (Disabling)
  Sender: FDA-Public Use
  Company Number: CR-NOVARTISPH-NVSC2022CR101473

PATIENT
  Age: 36 Year
  Sex: Female

DRUGS (1)
  1. EXFORGE HCT [Suspect]
     Active Substance: AMLODIPINE BESYLATE\HYDROCHLOROTHIAZIDE\VALSARTAN
     Indication: Product used for unknown indication
     Dosage: 1 DOSAGE FORM, (5MG:AMLODIPINE, 160MG:VALSARTAN, 12.5MG: HYDROCHLORTHIAZIDE), (STARTED 1 YEARS)
     Route: 065

REACTIONS (2)
  - Accident [Unknown]
  - Foot fracture [Unknown]

NARRATIVE: CASE EVENT DATE: 20211129
